FAERS Safety Report 6053064-6 (Version None)
Quarter: 2009Q1

REPORT INFORMATION
  Report Type: 
  Country: None (occurrence: None)
  Receive Date: 20090127
  Receipt Date: 20090115
  Transmission Date: 20090719
  Serious: Yes (Death)
  Sender: FDA-Public Use
  Company Number: US-PFIZER INC-2009157127

PATIENT

DRUGS (1)
  1. DILANTIN [Suspect]

REACTIONS (3)
  - CARDIO-RESPIRATORY ARREST [None]
  - OBESITY [None]
  - STEVENS-JOHNSON SYNDROME [None]
